FAERS Safety Report 6741330-8 (Version None)
Quarter: 2010Q2

REPORT INFORMATION
  Report Type: 
  Country: None (occurrence: None)
  Receive Date: 20100526
  Receipt Date: 20100517
  Transmission Date: 20101027
  Serious: Yes (Life-Threatening)
  Sender: FDA-Public Use
  Company Number: FR-PFIZER INC-2010055174

PATIENT
  Age: 24 Year
  Sex: Male

DRUGS (23)
  1. VFEND [Suspect]
     Indication: ASPERGILLOSIS
     Dosage: 320 MG, 2X/DAY
     Route: 042
     Dates: start: 20100119, end: 20100202
  2. FLAGYL [Suspect]
     Dosage: UNK
     Route: 042
     Dates: start: 20100125, end: 20100219
  3. PROPOFOL [Suspect]
     Indication: SEDATION
     Dosage: 100 MG, PER HOUR
     Route: 042
     Dates: start: 20100124, end: 20100125
  4. PROPOFOL [Suspect]
     Dosage: 150 MG PER HOUR
     Route: 042
     Dates: start: 20100128, end: 20100128
  5. PROPOFOL [Suspect]
     Dosage: 100 MG, PER HOUR
     Route: 042
     Dates: start: 20100129, end: 20100202
  6. MIDAZOLAM [Suspect]
     Indication: SEDATION
     Dosage: 4 MG PER HOUR THEN 10MG PER HOUR
     Route: 042
     Dates: start: 20100112
  7. SUFENTANIL [Suspect]
     Indication: SEDATION
     Dosage: 30 UG, PER HOUR
     Route: 042
     Dates: start: 20100112
  8. SUFENTANIL [Suspect]
     Dosage: 50 UG, PER HOUR
     Route: 042
  9. SUFENTANIL [Suspect]
     Dosage: 60 UG, PER HOUR
     Route: 042
     Dates: start: 20100124, end: 20100124
  10. ATRACURIUM [Suspect]
     Indication: SEDATION
     Dosage: 50MG, PER HOUR
     Route: 042
     Dates: start: 20100201, end: 20100202
  11. ATRACURIUM [Suspect]
     Dosage: 80MG TO 100MG, PER HOUR
     Route: 042
     Dates: start: 20100203, end: 20100206
  12. ATRACURIUM [Suspect]
     Dosage: 50 MG, PER HOUR
     Route: 042
     Dates: start: 20100207, end: 20100207
  13. NIMBEX [Suspect]
     Indication: SEDATION
     Dosage: 12 MG TO 30 MG, PER  HOUR
     Route: 042
     Dates: start: 20100119, end: 20100201
  14. PANCURONIUM BROMIDE [Suspect]
     Indication: SEDATION
     Dosage: UNK
     Route: 042
     Dates: start: 20100201, end: 20100202
  15. ROCEPHIN [Suspect]
     Dosage: UNK
     Route: 042
     Dates: start: 20100119, end: 20100125
  16. ROCEPHIN [Suspect]
     Dosage: UNK
     Dates: end: 20100227
  17. KETAMINE [Concomitant]
     Dosage: 15 MG, PER HOUR
     Dates: start: 20100202, end: 20100202
  18. KETAMINE [Concomitant]
     Dosage: 15 MG, PER HOUR
     Dates: start: 20100207, end: 20100207
  19. METHYLPREDNISOLONE [Concomitant]
     Indication: SEDATION
     Dosage: 70 MG PER DAY
     Route: 042
     Dates: start: 20100125, end: 20100202
  20. METHYLPREDNISOLONE [Concomitant]
     Dosage: 60MG THEN 40MG THEN 30MG
     Dates: start: 20100203
  21. BRICANYL [Concomitant]
     Dosage: 1 MG TO 2 MG PER HOUR
     Route: 042
  22. LOVENOX [Concomitant]
     Dosage: 40 IU
     Dates: end: 20100203
  23. SOLUTIONS FOR PARENTERAL NUTRITION [Concomitant]
     Dosage: 1500 ML PER DAY
     Dates: start: 20100123, end: 20100208

REACTIONS (3)
  - PROPOFOL INFUSION SYNDROME [None]
  - RENAL FAILURE ACUTE [None]
  - RHABDOMYOLYSIS [None]
